FAERS Safety Report 8464204 (Version 10)
Quarter: 2013Q4

REPORT INFORMATION
  Report Type: Report from Study
  Country: PL (occurrence: PL)
  Receive Date: 20120316
  Receipt Date: 20131029
  Transmission Date: 20140711
  Serious: Yes (Hospitalization, Other)
  Sender: FDA-Public Use
  Company Number: PL-ROCHE-1041227

PATIENT
  Age: 60 Year
  Sex: Male
  Weight: 84.6 kg

DRUGS (28)
  1. METHOXY POLYETHYLENE GLYCOL-EPOETIN BETA [Suspect]
     Indication: NEPHROGENIC ANAEMIA
     Route: 042
     Dates: start: 20111005
  2. METHOXY POLYETHYLENE GLYCOL-EPOETIN BETA [Suspect]
     Route: 042
     Dates: start: 20120507
  3. METHOXY POLYETHYLENE GLYCOL-EPOETIN BETA [Suspect]
     Route: 042
     Dates: start: 20120604
  4. METHOXY POLYETHYLENE GLYCOL-EPOETIN BETA [Suspect]
     Route: 042
     Dates: start: 20130708
  5. INSULIN ISOPHANE [Concomitant]
     Dosage: 46J DAILY
     Route: 065
     Dates: start: 20051123
  6. FUROSEMIDE [Concomitant]
     Route: 065
     Dates: start: 20051123
  7. ALLOPURINOL [Concomitant]
     Route: 065
     Dates: start: 20051123
  8. SIMVASTATIN [Concomitant]
     Route: 065
     Dates: start: 20051123
  9. ACETYLSALICYLIC ACID [Concomitant]
     Route: 065
     Dates: start: 20060522
  10. ALPHACALCIDOL [Concomitant]
     Route: 065
     Dates: start: 20060422
  11. OMEPRAZOLE [Concomitant]
     Route: 065
     Dates: start: 20070917
  12. TAMSULOSIN [Concomitant]
     Route: 065
     Dates: start: 20100212
  13. CINACALCET HYDROCHLORIDE [Concomitant]
     Route: 065
     Dates: start: 20111017
  14. INSULIN HUMAN [Concomitant]
     Route: 065
     Dates: start: 20051023
  15. CALCIUM CARBONATE [Concomitant]
     Route: 065
     Dates: start: 20070917
  16. ALUMINIUM HYDROXIDE [Concomitant]
     Route: 065
     Dates: start: 20100203
  17. CYANOCOBALAMIN [Concomitant]
     Route: 065
     Dates: start: 20100203
  18. DIOSMINE [Concomitant]
     Route: 065
     Dates: start: 20100322
  19. FOLIC ACID [Concomitant]
     Route: 065
     Dates: start: 20110114
  20. ETAMSYLATE [Concomitant]
     Route: 065
     Dates: start: 20080619
  21. ACETYLCYSTEINE [Concomitant]
     Route: 065
     Dates: start: 20100521
  22. DROTAVERINE [Concomitant]
     Route: 065
     Dates: start: 20100816
  23. DIMETICON [Concomitant]
     Route: 065
     Dates: start: 20100816
  24. TEMISARTAN [Concomitant]
     Route: 065
     Dates: start: 20130501
  25. PROPAFENONE HYDROCHLORIDE [Concomitant]
     Route: 065
     Dates: start: 20130211
  26. DIOSMIN [Concomitant]
     Dosage: MICRONISED, BEFORE RAMDOMISATION
     Route: 065
  27. HELICID [Concomitant]
     Route: 065
     Dates: start: 20070917
  28. CINACALCET [Concomitant]
     Route: 065
     Dates: start: 20121221

REACTIONS (4)
  - Rectal adenocarcinoma [Not Recovered/Not Resolved]
  - Pyrexia [Recovered/Resolved]
  - Pelvic abscess [Recovered/Resolved]
  - Lower gastrointestinal haemorrhage [Unknown]
